FAERS Safety Report 19172494 (Version 1)
Quarter: 2021Q2

REPORT INFORMATION
  Report Type: Spontaneous
  Country: US (occurrence: US)
  Receive Date: 20210423
  Receipt Date: 20210423
  Transmission Date: 20210717
  Serious: Yes (Other)
  Sender: FDA-Public Use
  Company Number: US-SA-2021SA131245

PATIENT

DRUGS (1)
  1. ZANTAC [Suspect]
     Active Substance: RANITIDINE HYDROCHLORIDE
     Route: 058
     Dates: start: 200001, end: 200412

REACTIONS (2)
  - Bladder cancer [Unknown]
  - Breast cancer [Unknown]

NARRATIVE: CASE EVENT DATE: 20161115
